FAERS Safety Report 7075558-7 (Version None)
Quarter: 2010Q4

REPORT INFORMATION
  Report Type: 
  Country: None (occurrence: None)
  Receive Date: 20101030
  Receipt Date: 20101004
  Transmission Date: 20110411
  Serious: No
  Sender: FDA-Public Use
  Company Number: US-WYE-H17993810

PATIENT
  Sex: Female

DRUGS (2)
  1. PRISTIQ [Suspect]
     Indication: FATIGUE
     Dosage: UNSPECIFIED
     Dates: start: 20090101, end: 20100101
  2. PRISTIQ [Suspect]
     Indication: SOMNOLENCE
     Dosage: UNSPECIFIED
     Dates: start: 20100101

REACTIONS (3)
  - BLOOD TEST ABNORMAL [None]
  - DRUG EFFECT DECREASED [None]
  - FOOD ALLERGY [None]
